FAERS Safety Report 6809119-9 (Version None)
Quarter: 2010Q2

REPORT INFORMATION
  Report Type: 
  Country: None (occurrence: None)
  Receive Date: 20100630
  Receipt Date: 20100623
  Transmission Date: 20101027
  Serious: No
  Sender: FDA-Public Use
  Company Number: US-BIOGENIDEC-2010BI021473

PATIENT
  Age: 54 Year
  Sex: Female

DRUGS (4)
  1. TYSABRI [Suspect]
     Indication: MULTIPLE SCLEROSIS
     Route: 042
     Dates: start: 20090813, end: 20091201
  2. TYSABRI [Suspect]
     Route: 042
     Dates: start: 20100501
  3. SINGULAIR [Concomitant]
     Indication: ASTHMA
  4. INHALER (NOS) [Concomitant]
     Indication: ASTHMA

REACTIONS (11)
  - ABDOMINAL PAIN UPPER [None]
  - ARTHRALGIA [None]
  - ASTHMA [None]
  - CYSTITIS [None]
  - DEPRESSION [None]
  - FATIGUE [None]
  - HEADACHE [None]
  - NASOPHARYNGITIS [None]
  - OEDEMA PERIPHERAL [None]
  - PAIN IN EXTREMITY [None]
  - SINUSITIS [None]
